FAERS Safety Report 11697052 (Version 1)
Quarter: 2015Q4

REPORT INFORMATION
  Report Type: Spontaneous
  Country: RU (occurrence: RU)
  Receive Date: 20151104
  Receipt Date: 20151104
  Transmission Date: 20160304
  Serious: Yes (Hospitalization, Other)
  Sender: FDA-Public Use
  Company Number: RU-ACTELION-A-CH2015-126220

PATIENT
  Age: 40 Year
  Sex: Female

DRUGS (9)
  1. ASPARCAM [Concomitant]
     Route: 042
  2. SILDENAFIL. [Concomitant]
     Active Substance: SILDENAFIL
     Indication: PULMONARY ARTERIAL HYPERTENSION
     Dosage: 60 MG, QD
     Dates: start: 20150402
  3. VENTAVIS [Suspect]
     Active Substance: ILOPROST
     Indication: PULMONARY ARTERIAL HYPERTENSION
     Dosage: 2 ML, QID
     Route: 055
     Dates: start: 20150804
  4. METIPRED [Concomitant]
     Active Substance: METHYLPREDNISOLONE
     Indication: SYSTEMIC SCLEROSIS
     Dosage: UNK
     Dates: start: 2015
  5. TRACLEER [Suspect]
     Active Substance: BOSENTAN
     Dosage: 62.5 MG, BID
     Route: 048
     Dates: start: 20150402, end: 20150501
  6. TRACLEER [Suspect]
     Active Substance: BOSENTAN
     Indication: PULMONARY ARTERIAL HYPERTENSION
     Dosage: 125 MG, BID
     Route: 048
     Dates: start: 20150502, end: 20150704
  7. OXYGEN. [Concomitant]
     Active Substance: OXYGEN
  8. TRACLEER [Suspect]
     Active Substance: BOSENTAN
     Dosage: 62.5 MG, BID
     Route: 048
     Dates: start: 20150705, end: 20150716
  9. ILOMEDIN [Concomitant]
     Indication: PULMONARY ARTERIAL HYPERTENSION
     Dosage: 20 ?G, UNK
     Route: 042
     Dates: start: 20150804

REACTIONS (18)
  - Fatigue [Recovering/Resolving]
  - Arthralgia [Recovering/Resolving]
  - Hepatic enzyme increased [Recovered/Resolved]
  - Aspartate aminotransferase increased [Recovered/Resolved]
  - Disease progression [Unknown]
  - Hypokalaemia [Recovering/Resolving]
  - Hypomagnesaemia [Recovering/Resolving]
  - Pulmonary arterial hypertension [Recovering/Resolving]
  - Hypoxia [Recovering/Resolving]
  - Condition aggravated [Recovering/Resolving]
  - Alanine aminotransferase increased [Recovered/Resolved]
  - Respiratory failure [Recovering/Resolving]
  - Cardiovascular insufficiency [Recovering/Resolving]
  - Gamma-glutamyltransferase increased [Recovered/Resolved]
  - Pyrexia [Recovering/Resolving]
  - Cough [Recovering/Resolving]
  - Pain in extremity [Recovering/Resolving]
  - Hepatotoxicity [Recovered/Resolved]

NARRATIVE: CASE EVENT DATE: 20150703
